FAERS Safety Report 12780239 (Version 1)
Quarter: 2016Q3

REPORT INFORMATION
  Report Type: Spontaneous
  Country: US (occurrence: US)
  Receive Date: 20160926
  Receipt Date: 20160926
  Transmission Date: 20161109
  Serious: No
  Sender: FDA-Public Use
  Company Number: US-ASTRAZENECA-2016SE98406

PATIENT
  Sex: Female
  Weight: 93.4 kg

DRUGS (2)
  1. PULMICORT FLEXHALER [Suspect]
     Active Substance: BUDESONIDE
     Indication: ASTHMA
     Dosage: 90 MCG 165 MG. 2 PUFFS PER DAY
     Route: 055
  2. XARELTO [Concomitant]
     Active Substance: RIVAROXABAN
     Indication: ATRIAL FIBRILLATION
     Route: 048

REACTIONS (6)
  - Product quality issue [Unknown]
  - Dyspnoea [Unknown]
  - Off label use [Unknown]
  - Nasopharyngitis [Unknown]
  - Insomnia [Unknown]
  - Drug dose omission [Unknown]
